FAERS Safety Report 5909604-8 (Version None)
Quarter: 2008Q4

REPORT INFORMATION
  Report Type: 
  Country: None (occurrence: None)
  Receive Date: 20081002
  Receipt Date: 20080917
  Transmission Date: 20090506
  Serious: Yes (Hospitalization)
  Sender: FDA-Public Use
  Company Number: ADE2008-0307

PATIENT
  Age: 75 Year
  Sex: Female

DRUGS (7)
  1. GABAPENTIN [Suspect]
     Indication: ANALGESIC INTERVENTION SUPPORTIVE THERAPY
     Dosage: 300MG - TID
  2. DICLOFENAC [Concomitant]
  3. TRAMADOL HCL [Concomitant]
  4. DIHYDROCODEINE BITARTRATE INJ [Concomitant]
  5. FUROSEMIDE [Concomitant]
  6. AMLODIPINE [Concomitant]
  7. IRBESARTAN [Concomitant]

REACTIONS (12)
  - ANAEMIA [None]
  - BILIARY DILATATION [None]
  - BLOOD ALKALINE PHOSPHATASE INCREASED [None]
  - CONDITION AGGRAVATED [None]
  - FALL [None]
  - GAMMA-GLUTAMYLTRANSFERASE INCREASED [None]
  - HAEMODIALYSIS [None]
  - IMPAIRED SELF-CARE [None]
  - RENAL CYST [None]
  - RENAL IMPAIRMENT [None]
  - SOMNOLENCE [None]
  - THERAPEUTIC AGENT TOXICITY [None]
